FAERS Safety Report 8407540-9 (Version None)
Quarter: 2012Q2

REPORT INFORMATION
  Report Type: 
  Country: None (occurrence: None)
  Receive Date: 20120529
  Receipt Date: 19960228
  Transmission Date: 20120825
  Serious: Yes (Hospitalization, Other)
  Sender: FDA-Public Use
  Company Number: 002501

PATIENT
  Age: 74 Year
  Sex: Female

DRUGS (5)
  1. PLETAL [Suspect]
     Dosage: 200 MG, DAILY DOSE, ORAL
     Route: 048
     Dates: start: 19960109, end: 19960205
  2. NIFEDIPINE [Concomitant]
  3. VINPOCETINE (VINPOCETINE) [Concomitant]
  4. DILAZEP HYDROCHLORIDE (DILAZEP HYDROCHLORIDE) [Concomitant]
  5. REBAMIPIDE (REBAMIPIDE) [Concomitant]

REACTIONS (2)
  - TACHYCARDIA [None]
  - CHEST DISCOMFORT [None]
